FAERS Safety Report 5301272-1 (Version None)
Quarter: 2007Q2

REPORT INFORMATION
  Report Type: 
  Country: None (occurrence: None)
  Receive Date: 20070411
  Receipt Date: 20070330
  Transmission Date: 20071010
  Serious: Yes (Death, Life-Threatening, Hospitalization, Other)
  Sender: FDA-Public Use
  Company Number: 2006SP007383

PATIENT
  Age: 75 Year
  Sex: Male
  Weight: 49 kg

DRUGS (6)
  1. TEMODAL [Suspect]
     Indication: GLIOBLASTOMA MULTIFORME
     Dosage: 300 MG; QD; PO
     Route: 048
     Dates: start: 20061121, end: 20061122
  2. TEMODAL [Suspect]
     Indication: MALIGNANT NEOPLASM PROGRESSION
     Dosage: 300 MG; QD; PO
     Route: 048
     Dates: start: 20061121, end: 20061122
  3. RINDERON [Concomitant]
  4. DEPAKENE [Concomitant]
  5. ACINON [Concomitant]
  6. NASEA OD [Concomitant]

REACTIONS (5)
  - BLOOD GLUCOSE INCREASED [None]
  - CEREBRAL HAEMORRHAGE [None]
  - CONDITION AGGRAVATED [None]
  - INFECTION [None]
  - INTRACRANIAL TUMOUR HAEMORRHAGE [None]
